FAERS Safety Report 15543243 (Version 1)
Quarter: 2018Q4

REPORT INFORMATION
  Report Type: Spontaneous
  Country: IT (occurrence: IT)
  Receive Date: 20181023
  Receipt Date: 20181023
  Transmission Date: 20190205
  Serious: Yes (Hospitalization)
  Sender: FDA-Public Use
  Company Number: PHHY2013IT120528

PATIENT
  Age: 58 Year
  Sex: Female
  Weight: 138 kg

DRUGS (4)
  1. OXALIPLATIN. [Suspect]
     Active Substance: OXALIPLATIN
     Indication: RECTAL NEOPLASM
     Dosage: 160 MG, UNK
     Route: 041
  2. FLUOROURACIL. [Concomitant]
     Active Substance: FLUOROURACIL
     Indication: PRODUCT USED FOR UNKNOWN INDICATION
     Dosage: 1000 MG, UNK
     Route: 065
     Dates: start: 20130925, end: 20130925
  3. OXALIPLATIN. [Suspect]
     Active Substance: OXALIPLATIN
     Indication: COLON CANCER
     Dosage: 85 MG, ONCE/SINGLE
     Route: 042
     Dates: start: 20130925, end: 20130925
  4. LEDERFOLIN [Concomitant]
     Active Substance: LEUCOVORIN CALCIUM
     Indication: PRODUCT USED FOR UNKNOWN INDICATION
     Dosage: 100 MG, UNK
     Route: 065
     Dates: start: 20130925, end: 20130925

REACTIONS (8)
  - Dyspnoea [Recovered/Resolved]
  - Chest discomfort [Recovered/Resolved]
  - Flushing [Recovered/Resolved]
  - Rash [Recovered/Resolved]
  - Burning sensation [Recovered/Resolved]
  - Chest discomfort [Recovered/Resolved]
  - Pruritus generalised [Recovered/Resolved]
  - Flushing [Recovered/Resolved]

NARRATIVE: CASE EVENT DATE: 20130925
